FAERS Safety Report 12047926 (Version 1)
Quarter: 2016Q1

REPORT INFORMATION
  Report Type: Spontaneous
  Country: CA (occurrence: CA)
  Receive Date: 20160208
  Receipt Date: 20160208
  Transmission Date: 20160526
  Serious: Yes (Death, Hospitalization, Other)
  Sender: FDA-Public Use
  Company Number: CA-SA-2016SA021537

PATIENT
  Age: 86 Year
  Sex: Female
  Weight: 31 kg

DRUGS (11)
  1. HALOPERIDOL. [Suspect]
     Active Substance: HALOPERIDOL
     Route: 065
  2. MIDAZOLAM [Suspect]
     Active Substance: MIDAZOLAM\MIDAZOLAM HYDROCHLORIDE
     Route: 065
  3. METHOTRIMEPRAZINE [Concomitant]
     Active Substance: LEVOMEPROMAZINE
  4. PHENOBARBITAL. [Suspect]
     Active Substance: PHENOBARBITAL
     Route: 065
  5. MORPHINE [Suspect]
     Active Substance: MORPHINE
     Route: 065
  6. FUROSEMIDE. [Suspect]
     Active Substance: FUROSEMIDE
     Route: 065
  7. HYOSCINE [Concomitant]
     Active Substance: SCOPOLAMINE
  8. NOZINAN /NET/ [Concomitant]
     Active Substance: LEVOMEPROMAZINE
  9. HYDROMORPHONE HYDROCHLORIDE. [Suspect]
     Active Substance: HYDROMORPHONE HYDROCHLORIDE
     Route: 065
  10. DIASTAT [Concomitant]
     Active Substance: DIAZEPAM
  11. LASIX [Concomitant]
     Active Substance: FUROSEMIDE

REACTIONS (6)
  - Death [Fatal]
  - Generalised tonic-clonic seizure [Unknown]
  - Weight decreased [Unknown]
  - Injection site pain [Unknown]
  - Tremor [Unknown]
  - Drug ineffective [Unknown]
